FAERS Safety Report 6931737-8 (Version None)
Quarter: 2010Q3

REPORT INFORMATION
  Report Type: 
  Country: None (occurrence: None)
  Receive Date: 20100813
  Receipt Date: 20100416
  Transmission Date: 20110219
  Serious: No
  Sender: FDA-Public Use
  Company Number: 1000013244

PATIENT
  Age: 57 Year
  Sex: Female

DRUGS (3)
  1. SAVELLA [Suspect]
     Dosage: 12.5 MG (12.5 MG,1 IN 1 D), ORAL
     Route: 048
     Dates: start: 20100412, end: 20100412
  2. DARVOCET (TABLETS) [Concomitant]
  3. ENXIUM [Concomitant]

REACTIONS (2)
  - FLUSHING [None]
  - NAUSEA [None]
